FAERS Safety Report 21194745 (Version 1)
Quarter: 2022Q3

REPORT INFORMATION
  Report Type: Spontaneous
  Country: IN (occurrence: IN)
  Receive Date: 20220810
  Receipt Date: 20220810
  Transmission Date: 20221026
  Serious: Yes (Other)
  Sender: FDA-Public Use
  Company Number: IN-PFIZER INC-202100952259

PATIENT
  Age: 76 Year
  Sex: Female
  Weight: 59.9 kg

DRUGS (10)
  1. PALBOCICLIB [Suspect]
     Active Substance: PALBOCICLIB
     Indication: Breast cancer metastatic
     Dosage: 125 MG, 1X/DAY
     Route: 048
     Dates: start: 20200923
  2. PALBOCICLIB [Suspect]
     Active Substance: PALBOCICLIB
     Dosage: 100 MG, 1X/DAY
     Route: 048
  3. PALBOCICLIB [Suspect]
     Active Substance: PALBOCICLIB
     Dosage: 75 MG, 1X/DAY (1-0-0)
     Route: 048
  4. PALBOCICLIB [Suspect]
     Active Substance: PALBOCICLIB
     Dosage: UNK
     Route: 048
     Dates: end: 20220523
  5. PALBOCICLIB [Suspect]
     Active Substance: PALBOCICLIB
     Dosage: UNK
     Route: 048
  6. PALBOCICLIB [Suspect]
     Active Substance: PALBOCICLIB
     Dosage: 75 MG, OD (1-0-0 FOR 21 DAYS/ 28 DAYS), CONTINUE FOR 3 MONTHS
     Route: 048
  7. LETROZOLE [Concomitant]
     Active Substance: LETROZOLE
     Dosage: 2.5 MG, DAILY
  8. CALCIUM\CHOLECALCIFEROL [Concomitant]
     Active Substance: CALCIUM\CHOLECALCIFEROL
     Dosage: UNK 1-0-1
  9. FULVESTRANT [Concomitant]
     Active Substance: FULVESTRANT
     Dosage: 500 MG, MONTHLY, CONTINUE FOR 3 MONTHS
     Route: 030
  10. FOLVITE [FOLIC ACID] [Concomitant]
     Dosage: 5 MG, (1-0-0), CONTINUE FOR 3 MONTHS

REACTIONS (13)
  - Second primary malignancy [Unknown]
  - Lymphoma [Unknown]
  - Hypertension [Unknown]
  - Dizziness [Unknown]
  - Blood test abnormal [Unknown]
  - Full blood count abnormal [Unknown]
  - Pyrexia [Unknown]
  - Neoplasm progression [Unknown]
  - Asthenia [Unknown]
  - Abdominal pain [Unknown]
  - Decreased appetite [Unknown]
  - Hepatic hypertrophy [Unknown]
  - Lymphadenopathy [Unknown]
